FAERS Safety Report 9840381 (Version 1)
Quarter: 2014Q1

REPORT INFORMATION
  Report Type: Spontaneous
  Country: CN (occurrence: CN)
  Receive Date: 20140124
  Receipt Date: 20140124
  Transmission Date: 20141002
  Serious: Yes (Other)
  Sender: FDA-Public Use
  Company Number: CN-JNJFOC-20140109559

PATIENT
  Sex: 0

DRUGS (1)
  1. RISPERDAL [Suspect]
     Indication: SCHIZOPHRENIA
     Route: 048

REACTIONS (8)
  - Arrhythmia [Unknown]
  - Electrocardiogram QT prolonged [Unknown]
  - Electrocardiogram PR shortened [Unknown]
  - Sinus tachycardia [Unknown]
  - Bradycardia [Unknown]
  - Electrocardiogram ST-T change [Unknown]
  - Electrocardiogram T wave abnormal [Unknown]
  - Electrocardiogram U-wave abnormality [Unknown]
